FAERS Safety Report 7240958 (Version 3)
Quarter: 2020Q3

REPORT INFORMATION
  Report Type: Report from Study
  Country: HK (occurrence: HK)
  Receive Date: 20100108
  Receipt Date: 20100506
  Transmission Date: 20201105
  Serious: Yes (Hospitalization)
  Sender: FDA-Public Use
  Company Number: HK-WYE-H12845110

PATIENT
  Age: 55 Year
  Sex: Female

DRUGS (13)
  1. VINORELBINE [Suspect]
     Active Substance: VINORELBINE TARTRATE
     Indication: BREAST CANCER
     Dosage: 35 MG DAY 1 AND 8 EVERY 3 WEEKS
     Route: 042
     Dates: start: 20091209, end: 20091229
  2. MAXOLON [Concomitant]
     Active Substance: METOCLOPRAMIDE HYDROCHLORIDE
     Indication: NAUSEA
     Dosage: NOT PROVIDED
     Route: 048
     Dates: start: 20091209
  3. ASCORBIC ACID\ERGOCALCIFEROL\FOLIC ACID\PANTHENOL\RETINOL\RIBOFLAVIN\THIAMINE HYDROCHLORIDE [Concomitant]
     Active Substance: ASCORBIC ACID\ERGOCALCIFEROL\FOLIC ACID\PANTHENOL\RETINOL\RIBOFLAVIN\THIAMINE HYDROCHLORIDE
     Dosage: NOT PROVIDED
     Route: 048
     Dates: start: 20091203
  4. MAXOLON [Concomitant]
     Active Substance: METOCLOPRAMIDE HYDROCHLORIDE
     Indication: VOMITING
  5. NAPROXEN. [Concomitant]
     Active Substance: NAPROXEN
     Indication: PYREXIA
     Dosage: NOT PROVIDED
     Route: 048
     Dates: start: 20091210
  6. ZOLEDRONATE [Concomitant]
     Active Substance: ZOLEDRONIC ACID
     Indication: METASTASES TO BONE
     Dosage: NOT PROVIDED
     Route: 048
     Dates: start: 20091125
  7. ZANTAC [Concomitant]
     Active Substance: RANITIDINE HYDROCHLORIDE
     Dosage: NOT PROVIDED
     Route: 048
     Dates: start: 20091126
  8. NERATINIB [Suspect]
     Active Substance: NERATINIB
     Indication: BREAST CANCER
     Route: 048
     Dates: start: 20091210
  9. ATROPINE SULFATE\DIPHENOXYLATE HYDROCHLORIDE [Concomitant]
     Active Substance: ATROPINE SULFATE\DIPHENOXYLATE HYDROCHLORIDE
     Indication: DIARRHOEA
     Dosage: NOT PROVIDED
     Route: 048
     Dates: start: 20091223
  10. FAMOTIDINE. [Concomitant]
     Active Substance: FAMOTIDINE
     Dosage: NOT PROVIDED
     Route: 048
     Dates: start: 20091211
  11. VITAMIN B6 [Concomitant]
     Active Substance: PYRIDOXINE HYDROCHLORIDE
     Dosage: NOT PROVIDED
     Route: 048
     Dates: start: 20091031
  12. CALCIUM CARBONATE. [Concomitant]
     Active Substance: CALCIUM CARBONATE
     Dosage: NOT PROVIDED
     Route: 048
     Dates: start: 20091203
  13. CHLORHEXIDINE GLUCONATE. [Concomitant]
     Active Substance: CHLORHEXIDINE GLUCONATE
     Indication: MUCOSAL INFLAMMATION
     Dosage: NOT PROVIDED
     Route: 048
     Dates: start: 20091209

REACTIONS (9)
  - Pyrexia [Recovered/Resolved]
  - Hypokalaemia [None]
  - White blood cell count decreased [None]
  - Hypophosphataemia [None]
  - Dyspnoea [None]
  - Anaemia [Recovered/Resolved]
  - Neutrophil count decreased [None]
  - Wound complication [None]
  - Hypoalbuminaemia [None]

NARRATIVE: CASE EVENT DATE: 20100106
